FAERS Safety Report 5320421-2 (Version None)
Quarter: 2007Q2

REPORT INFORMATION
  Report Type: 
  Country: None (occurrence: None)
  Receive Date: 20070509
  Receipt Date: 20070507
  Transmission Date: 20071010
  Serious: Yes (Death)
  Sender: FDA-Public Use
  Company Number: A0640432A

PATIENT
  Age: 60 Year
  Sex: Male

DRUGS (3)
  1. BEXXAR [Suspect]
     Indication: NON-HODGKIN'S LYMPHOMA
     Route: 042
     Dates: start: 20070215, end: 20070217
  2. COUMADIN [Concomitant]
  3. MS CONTIN [Concomitant]

REACTIONS (5)
  - JOINT SWELLING [None]
  - NEOPLASM PROGRESSION [None]
  - NON-HODGKIN'S LYMPHOMA [None]
  - OEDEMA PERIPHERAL [None]
  - WEIGHT DECREASED [None]
